FAERS Safety Report 14803187 (Version 1)
Quarter: 2018Q2

REPORT INFORMATION
  Report Type: Spontaneous
  Country: US (occurrence: US)
  Receive Date: 20180425
  Receipt Date: 20180425
  Transmission Date: 20180711
  Serious: Yes (Other)
  Sender: FDA-Public Use
  Company Number: US-STRIDES ARCOLAB LIMITED-2018SP003088

PATIENT

DRUGS (1)
  1. RANITIDINE. [Suspect]
     Active Substance: RANITIDINE
     Indication: GASTROOESOPHAGEAL REFLUX DISEASE
     Dosage: UNK (3? TEASPOONS)
     Route: 065

REACTIONS (7)
  - Drug dispensing error [Unknown]
  - Eye disorder [Unknown]
  - Overdose [Unknown]
  - Drug prescribing error [Unknown]
  - Gait disturbance [Unknown]
  - Lethargy [Unknown]
  - Tremor [Unknown]
